FAERS Safety Report 23013816 (Version 1)
Quarter: 2023Q4

REPORT INFORMATION
  Report Type: Spontaneous
  Country: US (occurrence: US)
  Receive Date: 20231001
  Receipt Date: 20231001
  Transmission Date: 20240109
  Serious: No
  Sender: FDA-Public Use
  Company Number: US-ARGENX-2023-ARGX-US002785

PATIENT

DRUGS (1)
  1. VYVGART HYTRULO [Suspect]
     Active Substance: EFGARTIGIMOD ALFA\HYALURONIDASE-QVFC
     Indication: Product used for unknown indication
     Dosage: UNK
     Dates: start: 20230814

REACTIONS (7)
  - Skin irritation [Unknown]
  - Injection site bruising [Unknown]
  - Injection site pruritus [Unknown]
  - Throat tightness [Unknown]
  - Injection site rash [Unknown]
  - Erythema [Unknown]
  - Condition aggravated [Unknown]

NARRATIVE: CASE EVENT DATE: 20230801
